FAERS Safety Report 26112484 (Version 2)
Quarter: 2025Q4

REPORT INFORMATION
  Report Type: Spontaneous
  Country: US (occurrence: None)
  Receive Date: 20251202
  Receipt Date: 20251203
  Transmission Date: 20260118
  Serious: Yes (Other)
  Sender: ALKERMES
  Company Number: US-ALKERMES INC.-ALK-2025-003134

PATIENT
  Age: 35 Year
  Sex: Female

DRUGS (1)
  1. VIVITROL [Suspect]
     Active Substance: NALTREXONE
     Indication: Product used for unknown indication
     Dosage: 380 MILLIGRAM, QMO

REACTIONS (5)
  - Injection site mass [Unknown]
  - Injection site abscess [Unknown]
  - Injection site cyst [Unknown]
  - Injection site pain [Unknown]
  - Injection site infection [Unknown]

NARRATIVE: CASE EVENT DATE: 20251101
